FAERS Safety Report 12386756 (Version 6)
Quarter: 2016Q3

REPORT INFORMATION
  Report Type: Report from Study
  Country: US (occurrence: US)
  Receive Date: 20160519
  Receipt Date: 20160815
  Transmission Date: 20161109
  Serious: Yes (Hospitalization, Other)
  Sender: FDA-Public Use
  Company Number: US-ACTELION-A-NJ2016-136278

PATIENT
  Age: 80 Year
  Sex: Female

DRUGS (3)
  1. ADCIRCA [Concomitant]
     Active Substance: TADALAFIL
  2. OPSUMIT [Suspect]
     Active Substance: MACITENTAN
     Indication: PULMONARY ARTERIAL HYPERTENSION
     Dosage: 10 MG, QD
     Route: 048
     Dates: start: 20150602
  3. TREPROSTINIL DIOLAMIN [Concomitant]
     Active Substance: TREPROSTINIL DIOLAMINE
     Dosage: 1.125 MG, UNK
     Route: 065

REACTIONS (9)
  - Pleural effusion [Not Recovered/Not Resolved]
  - Chemotherapy [Unknown]
  - Pneumonia [Recovered/Resolved]
  - Headache [Unknown]
  - Atrial tachycardia [Recovered/Resolved]
  - Pulmonary oedema [Unknown]
  - Pulmonary mass [Not Recovered/Not Resolved]
  - Lymphoma [Recovering/Resolving]
  - Nausea [Unknown]

NARRATIVE: CASE EVENT DATE: 201506
